FAERS Safety Report 6318098-2 (Version None)
Quarter: 2009Q3

REPORT INFORMATION
  Report Type: 
  Country: None (occurrence: None)
  Receive Date: 20090820
  Receipt Date: 20090820
  Transmission Date: 20100115
  Serious: Yes (Other)
  Sender: FDA-Public Use
  Company Number: None

PATIENT
  Sex: Female
  Weight: 59 kg

DRUGS (4)
  1. GLEEVEC [Suspect]
     Indication: METASTATIC MALIGNANT MELANOMA
     Dosage: 400 MILIGRAMS TWICE A DAY ORAL 047
     Route: 048
     Dates: start: 20090620, end: 20090728
  2. OXYCONTIN [Concomitant]
  3. . [Concomitant]
  4. LYRICA [Concomitant]

REACTIONS (1)
  - DISEASE PROGRESSION [None]
